FAERS Safety Report 7331471-9 (Version None)
Quarter: 2011Q1

REPORT INFORMATION
  Report Type: 
  Country: None (occurrence: None)
  Receive Date: 20110304
  Receipt Date: 20110228
  Transmission Date: 20110831
  Serious: Yes (Other)
  Sender: FDA-Public Use
  Company Number: US-PFIZER INC-2011021161

PATIENT
  Sex: Female
  Weight: 54.422 kg

DRUGS (3)
  1. DETROL LA [Suspect]
     Dosage: UNK
     Dates: start: 20070101
  2. ESTROGENS [Concomitant]
     Indication: HOT FLUSH
     Dosage: UNK
  3. TOVIAZ [Suspect]
     Indication: URGE INCONTINENCE
     Dosage: 4 MG, DAILY
     Route: 048
     Dates: start: 20110105, end: 20110130

REACTIONS (4)
  - DRUG INEFFECTIVE [None]
  - TREMOR [None]
  - VERTIGO [None]
  - DIZZINESS [None]
